FAERS Safety Report 23746135 (Version 3)
Quarter: 2024Q2

REPORT INFORMATION
  Report Type: Report from Study
  Country: FR (occurrence: FR)
  Receive Date: 20240416
  Receipt Date: 20240527
  Transmission Date: 20240715
  Serious: Yes (Hospitalization)
  Sender: FDA-Public Use
  Company Number: None

PATIENT
  Age: 84 Year
  Sex: Female
  Weight: 80 kg

DRUGS (12)
  1. DUPILUMAB [Suspect]
     Active Substance: DUPILUMAB
     Indication: Neurodermatitis
     Dosage: 600 MG, 1X
     Route: 058
     Dates: start: 20240105, end: 20240105
  2. DUPILUMAB [Suspect]
     Active Substance: DUPILUMAB
     Dosage: 300 MG, QOW
     Route: 058
     Dates: start: 202401, end: 20240315
  3. DUPILUMAB [Suspect]
     Active Substance: DUPILUMAB
     Dosage: 300 MG, QOW
     Route: 058
     Dates: start: 20240318
  4. FUROSEMIDE [Suspect]
     Active Substance: FUROSEMIDE
     Indication: Cardiac disorder
     Dosage: 125 UNK
     Dates: start: 201907
  5. FUROSEMIDE [Suspect]
     Active Substance: FUROSEMIDE
     Dosage: 250 MG, QD
     Route: 048
  6. SPIRONOLACTONE [Concomitant]
     Active Substance: SPIRONOLACTONE
     Indication: Hypertension
     Dosage: 75 MG, QD
  7. SPIRONOLACTONE [Concomitant]
     Active Substance: SPIRONOLACTONE
     Dosage: 50 UNK
     Dates: start: 201907
  8. CLOPIDOGREL [Concomitant]
     Active Substance: CLOPIDOGREL BISULFATE
     Indication: Cardiac valve disease
     Dosage: 75 MG, QD
     Dates: start: 201907
  9. BISOPROLOL [Concomitant]
     Active Substance: BISOPROLOL\BISOPROLOL FUMARATE
     Indication: Cardiac disorder
     Dosage: 5 MG, QD
     Dates: start: 201907
  10. LORAZEPAM [Concomitant]
     Active Substance: LORAZEPAM
     Dosage: 1 MG
  11. NITRAZEPAM [Concomitant]
     Active Substance: NITRAZEPAM
     Dosage: 5 MG, QD
  12. DIOSMIN [Concomitant]
     Active Substance: DIOSMIN
     Dosage: 600 MG, QD

REACTIONS (1)
  - Gout [Recovered/Resolved]

NARRATIVE: CASE EVENT DATE: 20240315
